FAERS Safety Report 16505632 (Version 1)
Quarter: 2019Q3

REPORT INFORMATION
  Report Type: Spontaneous
  Country: AT (occurrence: AT)
  Receive Date: 20190701
  Receipt Date: 20190701
  Transmission Date: 20191004
  Serious: Yes (Hospitalization)
  Sender: FDA-Public Use
  Company Number: AT-OTSUKA-2019_024498

PATIENT
  Age: 36 Year
  Sex: Male

DRUGS (31)
  1. ZELDOX [Concomitant]
     Active Substance: ZIPRASIDONE
     Dosage: 160 MG, QD
     Route: 065
     Dates: start: 20190305
  2. METOHEXAL [Concomitant]
     Active Substance: METOPROLOL
     Indication: PRODUCT USED FOR UNKNOWN INDICATION
     Dosage: 190 MG, QD
     Route: 065
     Dates: end: 20190325
  3. ABILIFY [Suspect]
     Active Substance: ARIPIPRAZOLE
     Dosage: 50 MG, QD
     Route: 065
     Dates: start: 20190319
  4. DEPAKINE [Suspect]
     Active Substance: VALPROATE SODIUM
     Dosage: 500 MG, QD
     Route: 065
     Dates: start: 20190208, end: 20190208
  5. DEPAKINE [Suspect]
     Active Substance: VALPROATE SODIUM
     Dosage: 500 MG, QD
     Route: 065
     Dates: start: 20190311, end: 20190313
  6. DEPAKINE [Suspect]
     Active Substance: VALPROATE SODIUM
     Indication: PRODUCT USED FOR UNKNOWN INDICATION
     Dosage: 250 MG, QD
     Route: 065
     Dates: start: 20190314, end: 20190315
  7. LYRICA [Concomitant]
     Active Substance: PREGABALIN
     Dosage: 450 MG, QD
     Route: 065
     Dates: start: 20190213, end: 20190228
  8. ABILIFY [Suspect]
     Active Substance: ARIPIPRAZOLE
     Dosage: 20 MG, QD
     Route: 065
     Dates: end: 20190312
  9. ABILIFY [Suspect]
     Active Substance: ARIPIPRAZOLE
     Dosage: 40 MG, QD
     Route: 065
     Dates: start: 20190314, end: 20190318
  10. TOPIRAMATE. [Suspect]
     Active Substance: TOPIRAMATE
     Indication: PRODUCT USED FOR UNKNOWN INDICATION
     Dosage: 200 MG, QD
     Route: 065
     Dates: end: 20190321
  11. RIVOTRIL [Concomitant]
     Active Substance: CLONAZEPAM
     Indication: PRODUCT USED FOR UNKNOWN INDICATION
     Dosage: 5.5 MG, QD
     Route: 065
  12. LYRICA [Concomitant]
     Active Substance: PREGABALIN
     Dosage: 600 MG, QD
     Route: 065
     Dates: start: 20190313
  13. EUCREAS [Concomitant]
     Active Substance: METFORMIN HYDROCHLORIDE\VILDAGLIPTIN
     Indication: PRODUCT USED FOR UNKNOWN INDICATION
     Dosage: UNK
     Route: 065
     Dates: start: 20190214, end: 20190227
  14. TOPIRAMATE. [Suspect]
     Active Substance: TOPIRAMATE
     Dosage: 150 MG, QD
     Route: 065
     Dates: start: 20190322
  15. DEPAKINE [Suspect]
     Active Substance: VALPROATE SODIUM
     Dosage: 750 MG, QD
     Route: 065
     Dates: start: 20190308, end: 20190310
  16. SEROQUEL [Concomitant]
     Active Substance: QUETIAPINE FUMARATE
     Indication: PRODUCT USED FOR UNKNOWN INDICATION
     Dosage: 1600 MG, QD
     Route: 065
     Dates: end: 20190208
  17. OLEOVIT D3 [Concomitant]
     Active Substance: CHOLECALCIFEROL
     Indication: PRODUCT USED FOR UNKNOWN INDICATION
     Dosage: 15 GTT, QD (ON SUNDAYS, WEEKLY)
     Route: 065
     Dates: start: 20190310
  18. CIPRALEX [Concomitant]
     Active Substance: ESCITALOPRAM OXALATE
     Indication: PRODUCT USED FOR UNKNOWN INDICATION
     Dosage: 20 MG, QD
     Route: 065
  19. METOHEXAL [Concomitant]
     Active Substance: METOPROLOL
     Dosage: 142.5 MG, QD
     Route: 065
     Dates: start: 20190326, end: 20190327
  20. ABILIFY [Suspect]
     Active Substance: ARIPIPRAZOLE
     Indication: PRODUCT USED FOR UNKNOWN INDICATION
     Dosage: 30 MG, QD
     Route: 065
     Dates: start: 20190213, end: 20190313
  21. DEPAKINE [Suspect]
     Active Substance: VALPROATE SODIUM
     Dosage: 1 G, QD
     Route: 065
     Dates: start: 20190209, end: 20190307
  22. EUCREAS [Concomitant]
     Active Substance: METFORMIN HYDROCHLORIDE\VILDAGLIPTIN
     Dosage: UNK
     Route: 065
     Dates: start: 20190228
  23. LYRICA [Concomitant]
     Active Substance: PREGABALIN
     Indication: PRODUCT USED FOR UNKNOWN INDICATION
     Dosage: 300 MG, QD
     Route: 065
     Dates: end: 20190212
  24. LYRICA [Concomitant]
     Active Substance: PREGABALIN
     Dosage: 375 MG, QD
     Route: 065
     Dates: start: 20190301, end: 20190306
  25. METOHEXAL [Concomitant]
     Active Substance: METOPROLOL
     Dosage: 95 MG, QD
     Route: 065
     Dates: start: 20190328
  26. SEROQUEL [Concomitant]
     Active Substance: QUETIAPINE FUMARATE
     Dosage: 800 MG, QD
     Route: 065
     Dates: start: 20190209
  27. INEGY [Concomitant]
     Active Substance: EZETIMIBE\SIMVASTATIN
     Indication: PRODUCT USED FOR UNKNOWN INDICATION
     Dosage: 1 DF, QD
     Route: 065
  28. ZELDOX [Concomitant]
     Active Substance: ZIPRASIDONE
     Indication: PRODUCT USED FOR UNKNOWN INDICATION
     Dosage: 40 MG, QD
     Route: 065
     Dates: start: 20190226, end: 20190227
  29. ZELDOX [Concomitant]
     Active Substance: ZIPRASIDONE
     Dosage: 80 MG, QD
     Route: 065
     Dates: start: 20190228, end: 20190302
  30. ZELDOX [Concomitant]
     Active Substance: ZIPRASIDONE
     Dosage: 120 MG, QD
     Route: 065
     Dates: start: 20190303, end: 20190304
  31. LYRICA [Concomitant]
     Active Substance: PREGABALIN
     Dosage: 450 MG, QD
     Route: 065
     Dates: start: 20190307, end: 20190312

REACTIONS (3)
  - Cognitive disorder [Recovered/Resolved]
  - Overdose [Unknown]
  - Hyperammonaemia [Recovered/Resolved]

NARRATIVE: CASE EVENT DATE: 20190314
